FAERS Safety Report 8529441-8 (Version None)
Quarter: 2012Q3

REPORT INFORMATION
  Report Type: 
  Country: None (occurrence: None)
  Receive Date: 20120723
  Receipt Date: 20120713
  Transmission Date: 20120928
  Serious: Yes (Hospitalization)
  Sender: FDA-Public Use
  Company Number: US-BAYER-2012-071828

PATIENT
  Age: 22 Year
  Sex: Female
  Weight: 84.807 kg

DRUGS (8)
  1. YASMIN [Suspect]
     Indication: PREMENSTRUAL SYNDROME
     Dosage: UNK
     Dates: start: 20040701, end: 20071001
  2. YASMIN [Suspect]
     Indication: DYSMENORRHOEA
  3. YAZ [Suspect]
     Indication: PREMENSTRUAL SYNDROME
     Dosage: UNK
     Dates: start: 20071001, end: 20091001
  4. YAZ [Suspect]
     Indication: CONTRACEPTION
  5. YASMIN [Suspect]
     Indication: CONTRACEPTION
  6. LEXAPRO [Concomitant]
     Dosage: 10 MG, UNK
  7. BUPROPION HYDROCHLORIDE [Concomitant]
     Dosage: 300 MG, UNK
  8. WELLBUTRIN [Concomitant]

REACTIONS (1)
  - PULMONARY EMBOLISM [None]
